FAERS Safety Report 5633548-2 (Version None)
Quarter: 2008Q1

REPORT INFORMATION
  Report Type: 
  Country: None (occurrence: None)
  Receive Date: 20080221
  Receipt Date: 20080212
  Transmission Date: 20080703
  Serious: Yes (Other)
  Sender: FDA-Public Use
  Company Number: IE-PFIZER INC-2008013353

PATIENT
  Age: 50 Year
  Sex: Male

DRUGS (1)
  1. LIPITOR [Suspect]
     Indication: CARDIOVASCULAR DISORDER
     Route: 048

REACTIONS (3)
  - BACK DISORDER [None]
  - BLOOD CREATINE PHOSPHOKINASE INCREASED [None]
  - INTERVERTEBRAL DISC DISORDER [None]
